FAERS Safety Report 7700828-6 (Version None)
Quarter: 2011Q3

REPORT INFORMATION
  Report Type: 
  Country: None (occurrence: None)
  Receive Date: 20110822
  Receipt Date: 20110817
  Transmission Date: 20111222
  Serious: Yes (Death)
  Sender: FDA-Public Use
  Company Number: ZA-PFIZER INC-2011191577

PATIENT
  Age: 23 Year
  Sex: Female

DRUGS (4)
  1. GEODON [Suspect]
     Dosage: 60 MG, 2X/DAY
     Route: 048
  2. LAMOTRIGINE [Suspect]
     Dosage: UNK
  3. AMITRIPTYLINE HCL [Suspect]
     Dosage: UNK
  4. VENLAFAXINE [Suspect]
     Dosage: UNK

REACTIONS (1)
  - COMPLETED SUICIDE [None]
